FAERS Safety Report 8114708-8 (Version None)
Quarter: 2012Q1

REPORT INFORMATION
  Report Type: 
  Country: None (occurrence: None)
  Receive Date: 20120202
  Receipt Date: 20120202
  Transmission Date: 20120608
  Serious: Yes (Hospitalization)
  Sender: FDA-Public Use
  Company Number: None

PATIENT
  Age: 65 Year
  Sex: Male
  Weight: 68.6 kg

DRUGS (1)
  1. TERAZOSIN HCL [Suspect]
     Indication: URINARY RETENTION
     Dosage: 5 MG HS PO
     Route: 048
     Dates: start: 20111205, end: 20111212

REACTIONS (1)
  - THROMBOCYTOPENIA [None]
